FAERS Safety Report 7700884-5 (Version None)
Quarter: 2011Q3

REPORT INFORMATION
  Report Type: 
  Country: None (occurrence: None)
  Receive Date: 20110822
  Receipt Date: 20110818
  Transmission Date: 20111222
  Serious: Yes (Death)
  Sender: FDA-Public Use
  Company Number: PHHY2011CA74300

PATIENT
  Sex: Male

DRUGS (2)
  1. ZOMETA [Suspect]
     Indication: PROSTATE CANCER METASTATIC
     Dosage: 4 MG, EVERY FOUR WEEKS
     Route: 042
     Dates: start: 20091101
  2. CHEMOTHERAPEUTICS [Concomitant]

REACTIONS (1)
  - DEATH [None]
